FAERS Safety Report 6779715-6 (Version None)
Quarter: 2010Q2

REPORT INFORMATION
  Report Type: 
  Country: None (occurrence: None)
  Receive Date: 20100618
  Receipt Date: 20100617
  Transmission Date: 20101027
  Serious: Yes (Death, Hospitalization)
  Sender: FDA-Public Use
  Company Number: PHHY2009TW61020

PATIENT
  Sex: Male

DRUGS (1)
  1. EXJADE [Suspect]
     Dosage: 1000 MG/DAY
     Route: 048

REACTIONS (7)
  - CARDIAC HYPERTROPHY [None]
  - DEATH [None]
  - DIARRHOEA [None]
  - NEPHROPATHY [None]
  - OEDEMA [None]
  - PLEURAL EFFUSION [None]
  - RASH [None]
